FAERS Safety Report 6985856-0 (Version None)
Quarter: 2010Q3

REPORT INFORMATION
  Report Type: 
  Country: None (occurrence: None)
  Receive Date: 20100915
  Receipt Date: 20100902
  Transmission Date: 20110219
  Serious: Yes (Hospitalization)
  Sender: FDA-Public Use
  Company Number: US-ELI_LILLY_AND_COMPANY-US201006002060

PATIENT
  Sex: Female

DRUGS (6)
  1. FORTEO [Suspect]
     Indication: OSTEOPOROSIS
     Dosage: 20 UG, DAILY (1/D)
  2. FORTEO [Suspect]
     Dosage: 20 UG, DAILY (1/D)
  3. VIACTIV /00751501/ [Concomitant]
     Dosage: UNK, 3/D
  4. ACIPHEX [Concomitant]
     Dosage: UNK, 2/D
  5. GAVISCON /00902401/ [Concomitant]
  6. OMEPRAZOLE [Concomitant]

REACTIONS (22)
  - ABDOMINAL PAIN [None]
  - ANAEMIA [None]
  - ANKLE FRACTURE [None]
  - ANTINUCLEAR ANTIBODY POSITIVE [None]
  - BONE DISORDER [None]
  - BONE PAIN [None]
  - BREAST PAIN [None]
  - CHEST PAIN [None]
  - ENTERITIS [None]
  - FALL [None]
  - FRACTURE [None]
  - GASTRITIS [None]
  - GASTROINTESTINAL DISORDER [None]
  - INTERVERTEBRAL DISC PROTRUSION [None]
  - MUSCLE SPASMS [None]
  - NAUSEA [None]
  - RADIUS FRACTURE [None]
  - RED BLOOD CELL SEDIMENTATION RATE INCREASED [None]
  - RIB FRACTURE [None]
  - SOFT TISSUE INJURY [None]
  - SWELLING [None]
  - WRIST FRACTURE [None]
